FAERS Safety Report 20956029 (Version 2)
Quarter: 2022Q2

REPORT INFORMATION
  Report Type: Spontaneous
  Country: US (occurrence: None)
  Receive Date: 20220614
  Receipt Date: 20220615
  Transmission Date: 20220721
  Serious: No
  Sender: FDA-Public Use
  Company Number: US-MDD US Operations-MDD202201-000128

PATIENT
  Sex: Female

DRUGS (1)
  1. APOKYN [Suspect]
     Active Substance: APOMORPHINE HYDROCHLORIDE
     Indication: Parkinson^s disease
     Dosage: NOT PROVIDED

REACTIONS (6)
  - Illness [Unknown]
  - Influenza like illness [Unknown]
  - Pain [Unknown]
  - Loss of personal independence in daily activities [Unknown]
  - Decreased appetite [Unknown]
  - Fatigue [Unknown]
